FAERS Safety Report 7168079-4 (Version None)
Quarter: 2010Q4

REPORT INFORMATION
  Report Type: 
  Country: None (occurrence: None)
  Receive Date: 20101216
  Receipt Date: 20101206
  Transmission Date: 20110411
  Serious: Yes (Other)
  Sender: FDA-Public Use
  Company Number: PHHY2009CA25962

PATIENT
  Sex: Female

DRUGS (6)
  1. EXJADE [Suspect]
     Indication: MYELODYSPLASTIC SYNDROME
     Dosage: 1250 MG, QD
     Route: 048
     Dates: start: 20090608
  2. EXJADE [Suspect]
     Indication: IRON OVERLOAD
     Dosage: 1000 MG, QD
     Route: 048
  3. EXJADE [Suspect]
     Dosage: 750 MG, QD
     Route: 048
     Dates: start: 20090401
  4. EXJADE [Suspect]
     Dosage: 1000 MG, QD
     Route: 048
  5. DIOVAN [Concomitant]
     Dosage: 80 MG, OD
  6. VITAMINS [Concomitant]

REACTIONS (12)
  - ABNORMAL FAECES [None]
  - ASPARTATE AMINOTRANSFERASE INCREASED [None]
  - BLOOD UREA INCREASED [None]
  - DEPRESSION [None]
  - DIARRHOEA [None]
  - FATIGUE [None]
  - FLATULENCE [None]
  - GASTROINTESTINAL PAIN [None]
  - NASOPHARYNGITIS [None]
  - NAUSEA [None]
  - RENAL DISORDER [None]
  - SERUM FERRITIN INCREASED [None]
